FAERS Safety Report 9305962 (Version 2)
Quarter: 2013Q2

REPORT INFORMATION
  Report Type: Spontaneous
  Country: JP (occurrence: JP)
  Receive Date: 20130523
  Receipt Date: 20130603
  Transmission Date: 20140414
  Serious: Yes (Other)
  Sender: FDA-Public Use
  Company Number: JP-ALLERGAN-1307297US

PATIENT
  Age: 46 Year
  Sex: Female

DRUGS (6)
  1. BOTOX [Suspect]
     Indication: MUSCLE SPASMS
     Dosage: 100 UNITS, SINGLE
     Route: 030
     Dates: start: 20130425, end: 20130425
  2. BOTOX [Suspect]
     Indication: MUSCLE DISORDER
     Dosage: 50 UNITS, SINGLE
     Route: 030
     Dates: start: 20130425, end: 20130425
  3. BOTOX [Suspect]
     Indication: MUSCLE DISORDER
     Dosage: 50 UNITS, SINGLE
     Route: 030
     Dates: start: 20130425, end: 20130425
  4. BOTOX [Suspect]
     Indication: MUSCLE DISORDER
     Dosage: 100 UNITS, SINGLE
     Route: 030
     Dates: start: 20130425, end: 20130425
  5. BOTOX [Suspect]
     Indication: MUSCLE DISORDER
     Dosage: 60 UNITS, SINGLE
     Route: 030
     Dates: start: 20130425, end: 20130425
  6. BOTOX [Suspect]
     Indication: MUSCLE DISORDER

REACTIONS (2)
  - Convulsion [Recovered/Resolved]
  - Nystagmus [Unknown]
